FAERS Safety Report 7299124-3 (Version None)
Quarter: 2011Q1

REPORT INFORMATION
  Report Type: 
  Country: None (occurrence: None)
  Receive Date: 20110217
  Receipt Date: 20110208
  Transmission Date: 20110831
  Serious: Yes (Hospitalization, Other)
  Sender: FDA-Public Use
  Company Number: US-ASTRAZENECA-2011SE07816

PATIENT
  Age: 71 Year
  Sex: Female

DRUGS (2)
  1. CYMBALTA [Concomitant]
  2. NEXIUM [Suspect]
     Route: 048

REACTIONS (5)
  - VOMITING [None]
  - GASTROOESOPHAGEAL REFLUX DISEASE [None]
  - DRUG DOSE OMISSION [None]
  - PHARYNGEAL OPERATION [None]
  - NEOPLASM [None]
